FAERS Safety Report 16130943 (Version 2)
Quarter: 2019Q2

REPORT INFORMATION
  Report Type: Report from Study
  Country: US (occurrence: US)
  Receive Date: 20190328
  Receipt Date: 20190625
  Transmission Date: 20190711
  Serious: Yes (Other)
  Sender: FDA-Public Use
  Company Number: PHHY2018US009327

PATIENT
  Age: 52 Year
  Sex: Female

DRUGS (2)
  1. NEURONTIN [Concomitant]
     Active Substance: GABAPENTIN
     Indication: BACK PAIN
     Dosage: UNK
     Route: 065
     Dates: start: 20180208
  2. GILENYA [Suspect]
     Active Substance: FINGOLIMOD HYDROCHLORIDE
     Indication: MULTIPLE SCLEROSIS
     Dosage: UNK, QD`
     Route: 048

REACTIONS (10)
  - Macular pigmentation [Unknown]
  - Dizziness [Not Recovered/Not Resolved]
  - Lymphocyte count decreased [Unknown]
  - Skin lesion [Unknown]
  - Blood alkaline phosphatase increased [Unknown]
  - Alanine aminotransferase increased [Unknown]
  - Papule [Unknown]
  - Aspartate aminotransferase increased [Unknown]
  - Melanocytic naevus [Unknown]
  - Insomnia [Unknown]

NARRATIVE: CASE EVENT DATE: 20170810
